FAERS Safety Report 22377752 (Version 1)
Quarter: 2023Q2

REPORT INFORMATION
  Report Type: Other
  Country: US (occurrence: None)
  Receive Date: 20230529
  Receipt Date: 20230529
  Transmission Date: 20230722
  Serious: Yes (Hospitalization)
  Sender: FDA-Public Use
  Company Number: US-ROCHE-3357114

PATIENT
  Age: 64 Year
  Sex: Female
  Weight: 67.192 kg

DRUGS (3)
  1. OCREVUS [Suspect]
     Active Substance: OCRELIZUMAB
     Indication: Primary progressive multiple sclerosis
     Dosage: PATIENT^S LAST DATE OF TREATMENT: 14/MAY/2020
     Route: 042
     Dates: start: 201801
  2. AMPYRA [Concomitant]
     Active Substance: DALFAMPRIDINE
     Indication: Primary progressive multiple sclerosis
     Route: 048
     Dates: start: 201712
  3. BACLOFEN [Concomitant]
     Active Substance: BACLOFEN
     Indication: Primary progressive multiple sclerosis
     Route: 048
     Dates: start: 201712

REACTIONS (4)
  - Urinary tract infection [Not Recovered/Not Resolved]
  - Kidney infection [Not Recovered/Not Resolved]
  - Wound [Not Recovered/Not Resolved]
  - Wound infection [Not Recovered/Not Resolved]

NARRATIVE: CASE EVENT DATE: 20230301
